FAERS Safety Report 11197792 (Version 1)
Quarter: 2015Q2

REPORT INFORMATION
  Report Type: Spontaneous
  Country: US (occurrence: US)
  Receive Date: 20150617
  Receipt Date: 20150617
  Transmission Date: 20150821
  Serious: No
  Sender: FDA-Public Use
  Company Number: US-TAKEDA-2014TUS008419

PATIENT
  Age: 80 Year
  Sex: Female

DRUGS (3)
  1. ULORIC [Suspect]
     Active Substance: FEBUXOSTAT
     Indication: GOUT
     Dosage: 40 MG, QD
     Dates: end: 20140903
  2. PREDNISONE. [Concomitant]
     Active Substance: PREDNISONE
     Indication: TEMPORAL ARTERITIS
     Dosage: UNK
  3. UNKNOWN HIGH BLOOD PRESSURE PILL [Concomitant]
     Indication: TEMPORAL ARTERITIS
     Dosage: UNK

REACTIONS (11)
  - Hormone level abnormal [Not Recovered/Not Resolved]
  - Crying [Unknown]
  - Breast pain [Recovering/Resolving]
  - Postmenopausal haemorrhage [Recovering/Resolving]
  - Gynaecomastia [Recovering/Resolving]
  - Abdominal distension [Not Recovered/Not Resolved]
  - Myalgia [Not Recovered/Not Resolved]
  - Headache [Unknown]
  - Decreased appetite [Not Recovered/Not Resolved]
  - Swelling [Unknown]
  - Feeling abnormal [Unknown]
